FAERS Safety Report 11823827 (Version 1)
Quarter: 2015Q4

REPORT INFORMATION
  Report Type: Report from Study
  Country: US (occurrence: US)
  Receive Date: 20151210
  Receipt Date: 20151210
  Transmission Date: 20160305
  Serious: Yes (Other)
  Sender: FDA-Public Use
  Company Number: US-JNJFOC-20150805503

PATIENT
  Age: 41 Year
  Sex: Female
  Weight: 95.26 kg

DRUGS (2)
  1. REMICADE [Suspect]
     Active Substance: INFLIXIMAB
     Indication: SARCOIDOSIS
     Route: 042
     Dates: start: 201412, end: 20150521
  2. REMICADE [Suspect]
     Active Substance: INFLIXIMAB
     Indication: ANKYLOSING SPONDYLITIS
     Route: 042
     Dates: start: 201412, end: 20150521

REACTIONS (9)
  - Drug dose omission [Not Recovered/Not Resolved]
  - Arthritis [Recovering/Resolving]
  - Abasia [Recovering/Resolving]
  - Rash [Recovered/Resolved]
  - Dyspnoea [Unknown]
  - Myalgia [Recovering/Resolving]
  - Product use issue [Unknown]
  - Arthralgia [Not Recovered/Not Resolved]
  - Hypersensitivity [Recovering/Resolving]

NARRATIVE: CASE EVENT DATE: 201412
